FAERS Safety Report 8602978 (Version 3)
Quarter: 2013Q1

REPORT INFORMATION
  Report Type: Spontaneous
  Country: US (occurrence: US)
  Receive Date: 20120607
  Receipt Date: 20130118
  Transmission Date: 20140127
  Serious: Yes (Other)
  Sender: FDA-Public Use
  Company Number: PHEH2012US010088

PATIENT
  Age: 58 Year
  Sex: Male

DRUGS (2)
  1. ZOMETA [Suspect]
     Indication: PROSTATE CANCER
     Dosage: UNK UKN, UNK
     Route: 042
     Dates: start: 20110114
  2. XANAX [Concomitant]
     Dosage: UNK UKN, EVERY 4 WEEKS
     Route: 042

REACTIONS (10)
  - Deafness [Not Recovered/Not Resolved]
  - Memory impairment [Unknown]
  - Gait disturbance [Unknown]
  - Balance disorder [Unknown]
  - Dyspnoea [Unknown]
  - Burning sensation [Not Recovered/Not Resolved]
  - Ear discomfort [Not Recovered/Not Resolved]
  - Crying [Not Recovered/Not Resolved]
  - Hypoaesthesia [Recovering/Resolving]
  - Headache [Not Recovered/Not Resolved]
